FAERS Safety Report 22974468 (Version 2)
Quarter: 2023Q4

REPORT INFORMATION
  Report Type: Report from Study
  Country: US (occurrence: US)
  Receive Date: 20230923
  Receipt Date: 20231027
  Transmission Date: 20240110
  Serious: Yes (Hospitalization, Other)
  Sender: FDA-Public Use
  Company Number: US-002147023-NVSC2023US203697

PATIENT
  Age: 36 Year
  Sex: Female

DRUGS (1)
  1. MAYZENT [Suspect]
     Active Substance: SIPONIMOD
     Indication: Multiple sclerosis
     Dosage: UNK
     Route: 065

REACTIONS (5)
  - Arthralgia [Unknown]
  - Cellulitis [Unknown]
  - Ligament sprain [Recovering/Resolving]
  - Vertigo [Recovering/Resolving]
  - Respiratory tract infection [Recovered/Resolved]

NARRATIVE: CASE EVENT DATE: 20230814
